FAERS Safety Report 7035547-5 (Version None)
Quarter: 2010Q4

REPORT INFORMATION
  Report Type: 
  Country: None (occurrence: None)
  Receive Date: 20101008
  Receipt Date: 20101001
  Transmission Date: 20110411
  Serious: Yes (Other)
  Sender: FDA-Public Use
  Company Number: US-PERRIGO-10US013591

PATIENT
  Sex: Male
  Weight: 16.78 kg

DRUGS (1)
  1. ACETAMINOPHEN CHILD BUBBLEGUM 32 MG/ML 105 [Suspect]
     Indication: PRODUCT USED FOR UNKNOWN INDICATION
     Dosage: 3840 MG, SINGLE
     Route: 048
     Dates: start: 20101001, end: 20101001

REACTIONS (1)
  - ACCIDENTAL OVERDOSE [None]
